FAERS Safety Report 26052525 (Version 1)
Quarter: 2025Q4

REPORT INFORMATION
  Report Type: Spontaneous
  Country: US (occurrence: US)
  Receive Date: 20251117
  Receipt Date: 20251117
  Transmission Date: 20260118
  Serious: No
  Sender: MERZ
  Company Number: US-Merz Pharmaceuticals GmbH-2025100000230

PATIENT

DRUGS (2)
  1. XEOMIN [Suspect]
     Active Substance: INCOBOTULINUMTOXINA
     Indication: Skin wrinkling
     Dates: start: 20251024, end: 20251024
  2. BACTRIM [Concomitant]
     Active Substance: SULFAMETHOXAZOLE\TRIMETHOPRIM
     Indication: Cystitis
     Dates: start: 202510

REACTIONS (5)
  - Tinnitus [Unknown]
  - Anxiety [Unknown]
  - Injection site pain [Unknown]
  - Headache [Recovering/Resolving]
  - Muscle spasms [Unknown]

NARRATIVE: CASE EVENT DATE: 20251001
